FAERS Safety Report 26188259 (Version 1)
Quarter: 2025Q4

REPORT INFORMATION
  Report Type: Spontaneous
  Country: EU (occurrence: EU)
  Receive Date: 20251222
  Receipt Date: 20251222
  Transmission Date: 20260118
  Serious: Yes (Hospitalization)
  Sender: MYLAN
  Company Number: None

PATIENT
  Age: 59 Year
  Sex: Female
  Weight: 61 kg

DRUGS (20)
  1. ETOPOSIDE [Suspect]
     Active Substance: ETOPOSIDE
     Indication: Hodgkin^s disease
     Dosage: 250 MILLIGRAM, CYCLE
     Dates: start: 20250808, end: 20250808
  2. ETOPOSIDE [Suspect]
     Active Substance: ETOPOSIDE
     Dosage: 250 MILLIGRAM, CYCLE
     Route: 042
     Dates: start: 20250808, end: 20250808
  3. ETOPOSIDE [Suspect]
     Active Substance: ETOPOSIDE
     Dosage: 250 MILLIGRAM, CYCLE
     Route: 042
     Dates: start: 20250808, end: 20250808
  4. ETOPOSIDE [Suspect]
     Active Substance: ETOPOSIDE
     Dosage: 250 MILLIGRAM, CYCLE
     Dates: start: 20250808, end: 20250808
  5. DEXAMETHASONE [Suspect]
     Active Substance: DEXAMETHASONE
     Indication: Hodgkin^s disease
     Dosage: 40 MILLIGRAM, CYCLE
     Dates: start: 20250808, end: 20250808
  6. DEXAMETHASONE [Suspect]
     Active Substance: DEXAMETHASONE
     Dosage: 40 MILLIGRAM, CYCLE
     Route: 042
     Dates: start: 20250808, end: 20250808
  7. DEXAMETHASONE [Suspect]
     Active Substance: DEXAMETHASONE
     Dosage: 40 MILLIGRAM, CYCLE
     Route: 042
     Dates: start: 20250808, end: 20250808
  8. DEXAMETHASONE [Suspect]
     Active Substance: DEXAMETHASONE
     Dosage: 40 MILLIGRAM, CYCLE
     Dates: start: 20250808, end: 20250808
  9. BRENTUXIMAB VEDOTIN [Suspect]
     Active Substance: BRENTUXIMAB VEDOTIN
     Indication: Hodgkin^s disease
     Dosage: 115 MILLIGRAM, CYCLE
     Dates: start: 20250807, end: 20250807
  10. BRENTUXIMAB VEDOTIN [Suspect]
     Active Substance: BRENTUXIMAB VEDOTIN
     Dosage: 115 MILLIGRAM, CYCLE
     Route: 042
     Dates: start: 20250807, end: 20250807
  11. BRENTUXIMAB VEDOTIN [Suspect]
     Active Substance: BRENTUXIMAB VEDOTIN
     Dosage: 115 MILLIGRAM, CYCLE
     Route: 042
     Dates: start: 20250807, end: 20250807
  12. BRENTUXIMAB VEDOTIN [Suspect]
     Active Substance: BRENTUXIMAB VEDOTIN
     Dosage: 115 MILLIGRAM, CYCLE
     Dates: start: 20250807, end: 20250807
  13. CYCLOPHOSPHAMIDE [Suspect]
     Active Substance: CYCLOPHOSPHAMIDE
     Indication: Hodgkin^s disease
     Dosage: 2100 MILLIGRAM, CYCLE
     Dates: start: 20250808, end: 20250808
  14. CYCLOPHOSPHAMIDE [Suspect]
     Active Substance: CYCLOPHOSPHAMIDE
     Dosage: 2100 MILLIGRAM, CYCLE
     Route: 042
     Dates: start: 20250808, end: 20250808
  15. CYCLOPHOSPHAMIDE [Suspect]
     Active Substance: CYCLOPHOSPHAMIDE
     Dosage: 2100 MILLIGRAM, CYCLE
     Route: 042
     Dates: start: 20250808, end: 20250808
  16. CYCLOPHOSPHAMIDE [Suspect]
     Active Substance: CYCLOPHOSPHAMIDE
     Dosage: 2100 MILLIGRAM, CYCLE
     Dates: start: 20250808, end: 20250808
  17. DOXORUBICIN [Suspect]
     Active Substance: DOXORUBICIN
     Indication: Hodgkin^s disease
     Dosage: 33 MILLIGRAM, CYCLE
     Dates: start: 20250808, end: 20250808
  18. DOXORUBICIN [Suspect]
     Active Substance: DOXORUBICIN
     Dosage: 33 MILLIGRAM, CYCLE
     Route: 042
     Dates: start: 20250808, end: 20250808
  19. DOXORUBICIN [Suspect]
     Active Substance: DOXORUBICIN
     Dosage: 33 MILLIGRAM, CYCLE
     Route: 042
     Dates: start: 20250808, end: 20250808
  20. DOXORUBICIN [Suspect]
     Active Substance: DOXORUBICIN
     Dosage: 33 MILLIGRAM, CYCLE
     Dates: start: 20250808, end: 20250808

REACTIONS (1)
  - Cardiac failure [Recovered/Resolved]

NARRATIVE: CASE EVENT DATE: 20251004
